FAERS Safety Report 8581377-2 (Version None)
Quarter: 2012Q3

REPORT INFORMATION
  Report Type: 
  Country: None (occurrence: None)
  Receive Date: 20120809
  Receipt Date: 20120730
  Transmission Date: 20120928
  Serious: Yes (Hospitalization, Disabling)
  Sender: FDA-Public Use
  Company Number: US-BAYER-2012-079044

PATIENT
  Sex: Female

DRUGS (1)
  1. YAZ [Suspect]
     Dosage: UNK
     Dates: start: 20070601, end: 20100101

REACTIONS (6)
  - ANHEDONIA [None]
  - INJURY [None]
  - ANXIETY [None]
  - PAIN [None]
  - DEFORMITY [None]
  - GALLBLADDER DISORDER [None]
